FAERS Safety Report 8773354 (Version 2)
Quarter: 2012Q4

REPORT INFORMATION
  Report Type: 
  Country: US (occurrence: US)
  Receive Date: 20120907
  Receipt Date: 20120914
  Transmission Date: 20130627
  Serious: Yes (Life-Threatening, Hospitalization, Disabling)
  Sender: FDA-Public Use
  Company Number: US-BAYER-2012-092262

PATIENT
  Age: 35 Year
  Sex: Female

DRUGS (7)
  1. YAZ [Suspect]
  2. YASMIN [Suspect]
  3. OCELLA [Suspect]
  4. NAUZENE [Concomitant]
  5. TRAMADOL HYDROCHLORIDE [Concomitant]
     Dosage: 50mg, take 2 tablets every 6 hours as needed for 7 days
     Route: 048
  6. CIPROFLOXACIN [Concomitant]
     Dosage: One tablet twice a day for 5 days
     Route: 048
  7. DIPHENHYDRAMINE [Concomitant]
     Dosage: 25mg one every 6 hours as needed
     Route: 048

REACTIONS (8)
  - Pulmonary embolism [None]
  - Injury [None]
  - Pain [None]
  - General physical health deterioration [None]
  - Anxiety [None]
  - Anhedonia [None]
  - Emotional distress [None]
  - Pain [None]
